FAERS Safety Report 9805328 (Version 2)
Quarter: 2014Q1

REPORT INFORMATION
  Report Type: Spontaneous
  Country: LT (occurrence: LT)
  Receive Date: 20140109
  Receipt Date: 20140205
  Transmission Date: 20141002
  Serious: Yes (Death)
  Sender: FDA-Public Use
  Company Number: LT-ALEXION-A201304814

PATIENT
  Sex: 0
  Weight: 17 kg

DRUGS (5)
  1. SOLIRIS 300MG [Suspect]
     Indication: HAEMOLYTIC URAEMIC SYNDROME
     Dosage: 600MG 5 HOURS PIROR TO TRANSPLANT AND 300 MG 16 HOURS LATER
     Route: 042
  2. SANDIMMUNE [Concomitant]
     Dosage: 50 MG, BID
  3. CELLCEPT [Concomitant]
     Dosage: 500 MG, BID
  4. MEDROL [Concomitant]
     Dosage: UNK
  5. HEPARIN [Concomitant]
     Dosage: UNK

REACTIONS (3)
  - Cerebrovascular accident [Fatal]
  - Blood creatinine decreased [Fatal]
  - Cerebral artery stenosis [Fatal]
